FAERS Safety Report 20668288 (Version 1)
Quarter: 2022Q2

REPORT INFORMATION
  Report Type: Spontaneous
  Country: CA (occurrence: CA)
  Receive Date: 20220404
  Receipt Date: 20220404
  Transmission Date: 20220721
  Serious: Yes (Hospitalization)
  Sender: FDA-Public Use
  Company Number: None

PATIENT
  Age: 66 Year
  Sex: Male
  Weight: 66 kg

DRUGS (11)
  1. FLUOROURACIL [Suspect]
     Active Substance: FLUOROURACIL
     Indication: Colon cancer
     Dosage: ONCE
     Route: 042
  2. PROCHLORPERAZINE MALEATE [Concomitant]
     Active Substance: PROCHLORPERAZINE MALEATE
  3. ATROPINE [Concomitant]
     Active Substance: ATROPINE
     Route: 047
  4. COMBIGAN [Concomitant]
     Active Substance: BRIMONIDINE TARTRATE\TIMOLOL MALEATE
  5. EURO-K [Concomitant]
  6. HYDROMORPHONE [Concomitant]
     Active Substance: HYDROMORPHONE
  7. FERROUS SULFATE ANHYDROUS [Concomitant]
     Active Substance: FERROUS SULFATE ANHYDROUS
  8. MOXIFLOXACIN [Concomitant]
     Active Substance: MOXIFLOXACIN
  9. NAPROXEN [Concomitant]
     Active Substance: NAPROXEN
  10. PREDNISOLONE [Concomitant]
     Active Substance: PREDNISOLONE
     Route: 047
  11. TYLENOL [Concomitant]
     Active Substance: ACETAMINOPHEN

REACTIONS (13)
  - Febrile neutropenia [Unknown]
  - Bacteraemia [Unknown]
  - Cough [Unknown]
  - Dysphagia [Unknown]
  - Facial pain [Unknown]
  - Fatigue [Unknown]
  - Mucosal inflammation [Unknown]
  - Oral mucosal eruption [Unknown]
  - Rash maculo-papular [Unknown]
  - Rash morbilliform [Unknown]
  - Retinal detachment [Unknown]
  - Scab [Unknown]
  - Sycosis barbae [Unknown]
